FAERS Safety Report 8143987-6 (Version None)
Quarter: 2012Q1

REPORT INFORMATION
  Report Type: 
  Country: None (occurrence: None)
  Receive Date: 20120217
  Receipt Date: 20120217
  Transmission Date: 20120608
  Serious: Yes (Hospitalization)
  Sender: FDA-Public Use
  Company Number: None

PATIENT
  Age: 71 Year
  Sex: Male
  Weight: 63.5 kg

DRUGS (1)
  1. DALIRESP [Suspect]
     Indication: CHRONIC OBSTRUCTIVE PULMONARY DISEASE
     Dosage: DALIRESP
     Route: 048
     Dates: start: 20120201, end: 20120207

REACTIONS (3)
  - ELECTROCARDIOGRAM ABNORMAL [None]
  - SINUS TACHYCARDIA [None]
  - BLOOD PRESSURE INCREASED [None]
